FAERS Safety Report 8459964-1 (Version None)
Quarter: 2012Q2

REPORT INFORMATION
  Report Type: 
  Country: None (occurrence: None)
  Receive Date: 20120622
  Receipt Date: 20120619
  Transmission Date: 20120825
  Serious: Yes (Hospitalization)
  Sender: FDA-Public Use
  Company Number: PHEH2012US012277

PATIENT
  Sex: Male

DRUGS (1)
  1. VALTURNA [Suspect]
     Indication: HYPERTENSION
     Route: 048
     Dates: end: 20120601

REACTIONS (3)
  - HYPOTENSION [None]
  - CEREBROVASCULAR ACCIDENT [None]
  - HYPERTENSION [None]
